FAERS Safety Report 9322148 (Version 3)
Quarter: 2013Q3

REPORT INFORMATION
  Report Type: Spontaneous
  Country: FI (occurrence: FI)
  Receive Date: 20130531
  Receipt Date: 20130709
  Transmission Date: 20140515
  Serious: Yes (Hospitalization)
  Sender: FDA-Public Use
  Company Number: FI-AMGEN-FINSP2013038525

PATIENT
  Age: 35 Year
  Sex: Female
  Weight: 90 kg

DRUGS (7)
  1. ENBREL [Suspect]
     Indication: JUVENILE IDIOPATHIC ARTHRITIS
     Dosage: 50 MG, WEEKLY
     Route: 058
     Dates: start: 20130326, end: 20130516
  2. SALAZOPYRIN EN [Concomitant]
     Dosage: 500, 2 X 2
  3. VIMOVO [Concomitant]
     Dosage: 1-2, AS NEEDED
  4. PANADOL                            /00020001/ [Concomitant]
     Dosage: AS NEEDED
  5. FLIXONASE [Concomitant]
     Dosage: AS NEEDED
  6. FLIXOTIDE [Concomitant]
     Dosage: IN THE MORNINGS AND EVENINGS
  7. VENTOLINE [Concomitant]
     Dosage: AS NEEDED

REACTIONS (4)
  - Vestibular neuronitis [Not Recovered/Not Resolved]
  - Dizziness [Recovered/Resolved]
  - Tinnitus [Unknown]
  - Influenza [Unknown]
